FAERS Safety Report 7177914-5 (Version None)
Quarter: 2010Q4

REPORT INFORMATION
  Report Type: 
  Country: None (occurrence: None)
  Receive Date: 20101220
  Receipt Date: 20101209
  Transmission Date: 20110411
  Serious: Yes (Hospitalization, Other)
  Sender: FDA-Public Use
  Company Number: US-US-EMD SERONO, INC.-7017526

PATIENT
  Sex: Female

DRUGS (1)
  1. REBIF [Suspect]
     Indication: PRODUCT USED FOR UNKNOWN INDICATION
     Route: 058
     Dates: start: 20100607, end: 20100901

REACTIONS (4)
  - FATIGUE [None]
  - HYSTERECTOMY [None]
  - INFLUENZA LIKE ILLNESS [None]
  - PROCEDURAL COMPLICATION [None]
